FAERS Safety Report 11916404 (Version 1)
Quarter: 2016Q1

REPORT INFORMATION
  Report Type: Spontaneous
  Country: CN (occurrence: CN)
  Receive Date: 20160114
  Receipt Date: 20160114
  Transmission Date: 20160526
  Serious: Yes (Other)
  Sender: FDA-Public Use
  Company Number: CN-PFIZER INC-2016007814

PATIENT
  Age: 33 Year
  Sex: Male

DRUGS (2)
  1. TYGACIL [Suspect]
     Active Substance: TIGECYCLINE
     Indication: BACTERIAL INFECTION
     Dosage: 100 MG, 2X/DAY
     Route: 041
     Dates: start: 20151223, end: 20160107
  2. TYGACIL [Suspect]
     Active Substance: TIGECYCLINE
     Indication: THERMAL BURN

REACTIONS (1)
  - Haemorrhage [Recovering/Resolving]

NARRATIVE: CASE EVENT DATE: 201601
